FAERS Safety Report 8396537-3 (Version None)
Quarter: 2012Q2

REPORT INFORMATION
  Report Type: 
  Country: None (occurrence: None)
  Receive Date: 20120530
  Receipt Date: 20120516
  Transmission Date: 20120825
  Serious: Yes (Other)
  Sender: FDA-Public Use
  Company Number: JP-NAPPMUNDI-GBR-2011-0009335

PATIENT
  Age: 75 Year
  Sex: Male

DRUGS (4)
  1. REZALTAS [Concomitant]
     Indication: HYPERTENSION
     Route: 048
  2. SELARA [Concomitant]
     Indication: HYPERTENSION
     Route: 048
  3. BUPRENORPHINE [Suspect]
     Indication: BACK PAIN
     Dosage: 5 MCG, Q1H
     Route: 062
     Dates: start: 20111209, end: 20111216
  4. MAIBASTAN [Concomitant]
     Indication: HYPERTENSION
     Route: 048

REACTIONS (12)
  - SENSATION OF PRESSURE [None]
  - CONFUSIONAL STATE [None]
  - FEELING ABNORMAL [None]
  - ASTHENIA [None]
  - CHOKING SENSATION [None]
  - MALAISE [None]
  - FLUSHING [None]
  - ANXIETY [None]
  - DECREASED APPETITE [None]
  - SKIN ODOUR ABNORMAL [None]
  - AMNESIA [None]
  - NAUSEA [None]
